FAERS Safety Report 6159157-7 (Version None)
Quarter: 2009Q2

REPORT INFORMATION
  Report Type: 
  Country: None (occurrence: None)
  Receive Date: 20090417
  Receipt Date: 20090406
  Transmission Date: 20091009
  Serious: No
  Sender: FDA-Public Use
  Company Number: AU-ELI_LILLY_AND_COMPANY-AU200903001423

PATIENT
  Sex: Male

DRUGS (6)
  1. CYMBALTA [Suspect]
     Indication: MAJOR DEPRESSION
     Dosage: 60 MG, DAILY (1/D)
     Route: 065
     Dates: start: 20081008
  2. CYMBALTA [Suspect]
     Dosage: 30 MG, DAILY (1/D)
     Route: 065
     Dates: end: 20090218
  3. CODAPANE [Concomitant]
     Indication: PAIN
     Dosage: 120 MG, UNKNOWN
     Route: 065
  4. CODAPANE [Concomitant]
     Dosage: 30 MG, UNKNOWN
     Route: 065
  5. CRESTOR [Concomitant]
     Indication: BLOOD CHOLESTEROL
     Dosage: 10 MG, DAILY (1/D)
     Route: 065
  6. RANI 2 [Concomitant]
     Indication: GASTROOESOPHAGEAL REFLUX DISEASE
     Dosage: 300 MG, DAILY (1/D)
     Route: 065

REACTIONS (5)
  - ABNORMAL DREAMS [None]
  - HEADACHE [None]
  - HYPERHIDROSIS [None]
  - URINE COLOUR ABNORMAL [None]
  - URINE ODOUR ABNORMAL [None]
